FAERS Safety Report 9163171 (Version 5)
Quarter: 2013Q3

REPORT INFORMATION
  Report Type: Spontaneous
  Country: JP (occurrence: JP)
  Receive Date: 20130314
  Receipt Date: 20130729
  Transmission Date: 20140515
  Serious: Yes (Hospitalization)
  Sender: FDA-Public Use
  Company Number: JP-ABBOTT-13P-087-1059814-00

PATIENT
  Age: 35 Year
  Sex: Male
  Weight: 65.5 kg

DRUGS (6)
  1. HUMIRA [Suspect]
     Indication: CROHN^S DISEASE
     Route: 058
     Dates: start: 20120410, end: 20120410
  2. HUMIRA [Suspect]
     Dates: start: 20130424, end: 20130424
  3. HUMIRA [Suspect]
     Dates: start: 20120508, end: 20130204
  4. MESALAZINE [Concomitant]
     Indication: CROHN^S DISEASE
     Route: 048
     Dates: start: 20120323
  5. PREDNISOLONE [Concomitant]
     Indication: CROHN^S DISEASE
     Route: 048
     Dates: start: 20120516
  6. MOSAPRIDE CITRATE [Concomitant]
     Indication: PRODUCT USED FOR UNKNOWN INDICATION
     Route: 048
     Dates: start: 20120516

REACTIONS (3)
  - Pancytopenia [Recovered/Resolved]
  - Blood albumin decreased [Recovered/Resolved]
  - Ascites [Recovered/Resolved]
